FAERS Safety Report 4405456-6 (Version None)
Quarter: 2004Q3

REPORT INFORMATION
  Report Type: 
  Country: None (occurrence: None)
  Receive Date: 20040723
  Receipt Date: 20030829
  Transmission Date: 20050211
  Serious: No
  Sender: FDA-Public Use
  Company Number: US-GLAXOSMITHKLINE-A0424139A

PATIENT
  Age: 79 Year
  Sex: Male

DRUGS (3)
  1. AVANDIA [Suspect]
     Dosage: 8MG PER DAY
     Route: 048
  2. INSULIN [Concomitant]
  3. METFORMIN HCL [Concomitant]

REACTIONS (2)
  - DYSPNOEA [None]
  - OEDEMA [None]
